FAERS Safety Report 25627892 (Version 1)
Quarter: 2025Q3

REPORT INFORMATION
  Report Type: Spontaneous
  Country: EU (occurrence: EU)
  Receive Date: 20250731
  Receipt Date: 20250731
  Transmission Date: 20251021
  Serious: Yes (Hospitalization)
  Sender: OTSUKA
  Company Number: None

PATIENT
  Age: 18 Year
  Sex: Male
  Weight: 72.5 kg

DRUGS (4)
  1. ARIPIPRAZOLE [Suspect]
     Active Substance: ARIPIPRAZOLE
     Indication: Poisoning deliberate
     Route: 065
     Dates: start: 20250621, end: 20250621
  2. CYAMEMAZINE [Suspect]
     Active Substance: CYAMEMAZINE
     Indication: Poisoning deliberate
     Route: 065
     Dates: start: 20250621, end: 20250621
  3. TRAMADOL [Suspect]
     Active Substance: TRAMADOL
     Indication: Poisoning deliberate
     Route: 065
     Dates: start: 20250621, end: 20250621
  4. ETIFOXINE [Suspect]
     Active Substance: ETIFOXINE
     Indication: Poisoning deliberate
     Route: 065
     Dates: start: 20250621, end: 20250621

REACTIONS (2)
  - Coma [Recovered/Resolved]
  - Poisoning deliberate [Recovered/Resolved]

NARRATIVE: CASE EVENT DATE: 20250621
